FAERS Safety Report 6036539-5 (Version None)
Quarter: 2009Q1

REPORT INFORMATION
  Report Type: 
  Country: None (occurrence: None)
  Receive Date: 20090114
  Receipt Date: 20090106
  Transmission Date: 20090719
  Serious: Yes (Hospitalization)
  Sender: FDA-Public Use
  Company Number: JP-JNJFOC-20090102229

PATIENT
  Age: 17 Year
  Sex: Male

DRUGS (8)
  1. CRAVIT [Suspect]
     Indication: DIARRHOEA
     Route: 048
  2. CRAVIT [Suspect]
     Indication: VOMITING
     Route: 048
  3. CRAVIT [Suspect]
     Indication: HYPERTHERMIA
     Route: 048
  4. VOLTAREN [Suspect]
     Indication: DRUG USE FOR UNKNOWN INDICATION
     Route: 065
  5. STROCAIN [Concomitant]
     Route: 065
  6. SESDEN [Concomitant]
     Route: 065
  7. ISALON [Concomitant]
     Route: 065
  8. GASTER [Concomitant]
     Route: 065

REACTIONS (1)
  - SHOCK [None]
